FAERS Safety Report 15456686 (Version 1)
Quarter: 2018Q3

REPORT INFORMATION
  Report Type: Spontaneous
  Country: US (occurrence: US)
  Receive Date: 20180928
  Receipt Date: 20180928
  Transmission Date: 20181010
  Serious: Yes (Hospitalization)
  Sender: FDA-Public Use
  Company Number: None

PATIENT
  Age: 24 Year
  Sex: Female

DRUGS (4)
  1. CHLOROTHIAZIDE. [Concomitant]
     Active Substance: CHLOROTHIAZIDE
  2. VIOKACE [Suspect]
     Active Substance: PANCRELIPASE AMYLASE\PANCRELIPASE LIPASE\PANCRELIPASE PROTEASE
     Dosage: 20880 IU IID ORAL
     Route: 048
     Dates: start: 20170321
  3. DIAZEPAM. [Concomitant]
     Active Substance: DIAZEPAM
  4. PHENOBARBITAL. [Concomitant]
     Active Substance: PHENOBARBITAL

REACTIONS (3)
  - Biopsy liver [None]
  - Post procedural haemorrhage [None]
  - Internal haemorrhage [None]

NARRATIVE: CASE EVENT DATE: 20180804
